FAERS Safety Report 19913496 (Version 1)
Quarter: 2021Q4

REPORT INFORMATION
  Report Type: Spontaneous
  Country: CN (occurrence: CN)
  Receive Date: 20211004
  Receipt Date: 20211004
  Transmission Date: 20220303
  Serious: Yes (Other)
  Sender: FDA-Public Use
  Company Number: CN-MLMSERVICE-20210920-3115206-1

PATIENT
  Age: 51 Year
  Sex: Male

DRUGS (4)
  1. FLUOROURACIL [Suspect]
     Active Substance: FLUOROURACIL
     Indication: Adenocarcinoma of colon
     Dosage: 400 MG/M2 IV BOLUS ON DAY 1, THEN 1200 MG/M2/DAY X 2 DAYS,
     Route: 040
     Dates: start: 202004, end: 202012
  2. OXALIPLATIN [Suspect]
     Active Substance: OXALIPLATIN
     Indication: Metastases to liver
     Dosage: 85 MG/M2 IV DAY 1Z
     Route: 042
     Dates: start: 202004, end: 202006
  3. CETUXIMAB [Suspect]
     Active Substance: CETUXIMAB
     Indication: Metastases to liver
     Dosage: 500 MG/M2 IV OVER 2 HOURS, DAY 1, EVERY 2 WEEKS
     Route: 042
     Dates: start: 202004, end: 202006
  4. LEUCOVORIN [Suspect]
     Active Substance: LEUCOVORIN
     Indication: Metastases to liver
     Dosage: 400 MG/M2 IV DAY 1AA
     Route: 042
     Dates: start: 202004, end: 202006

REACTIONS (2)
  - Impaired quality of life [Unknown]
  - Rash [Unknown]

NARRATIVE: CASE EVENT DATE: 20200601
